FAERS Safety Report 23718699 (Version 2)
Quarter: 2024Q2

REPORT INFORMATION
  Report Type: Spontaneous
  Country: US (occurrence: US)
  Receive Date: 20240408
  Receipt Date: 20240510
  Transmission Date: 20240715
  Serious: Yes (Death, Other)
  Sender: FDA-Public Use
  Company Number: US-Blueprint Medicines Corporation-3031

PATIENT
  Sex: Female

DRUGS (1)
  1. AYVAKIT [Suspect]
     Active Substance: AVAPRITINIB
     Indication: Gastrointestinal stromal tumour
     Route: 048
     Dates: start: 20240124

REACTIONS (4)
  - Death [Fatal]
  - Small intestinal obstruction [Unknown]
  - Gastrointestinal haemorrhage [Unknown]
  - Product dose omission issue [Unknown]
